FAERS Safety Report 23485778 (Version 1)
Quarter: 2024Q1

REPORT INFORMATION
  Report Type: Spontaneous
  Country: PT (occurrence: PT)
  Receive Date: 20240206
  Receipt Date: 20240206
  Transmission Date: 20240410
  Serious: Yes (Other)
  Sender: FDA-Public Use
  Company Number: None

PATIENT
  Age: 41 Year
  Sex: Male

DRUGS (8)
  1. OCREVUS [Suspect]
     Active Substance: OCRELIZUMAB
     Indication: Relapsing-remitting multiple sclerosis
     Dosage: 600MG IV FOR 6/6 MONTHS?CONCENTRATE FOR SOLUTION FOR INFUSION
     Route: 065
     Dates: start: 20190201, end: 20230309
  2. TROSPIUM CHLORIDE [Concomitant]
     Active Substance: TROSPIUM CHLORIDE
  3. AMANTADINE HYDROCHLORIDE [Concomitant]
     Active Substance: AMANTADINE HYDROCHLORIDE
  4. DALFAMPRIDINE [Concomitant]
     Active Substance: DALFAMPRIDINE
  5. TIZANIDINE [Concomitant]
     Active Substance: TIZANIDINE
  6. GABAPENTIN [Concomitant]
     Active Substance: GABAPENTIN
  7. TAMSULOSIN HYDROCHLORIDE [Concomitant]
     Active Substance: TAMSULOSIN HYDROCHLORIDE
  8. BACLOFEN [Concomitant]
     Active Substance: BACLOFEN
     Dosage: 25 MG + 50 MG

REACTIONS (3)
  - Immunoglobulins decreased [Not Recovered/Not Resolved]
  - Infected bite [Recovered/Resolved]
  - Respiratory tract infection [Recovered/Resolved]

NARRATIVE: CASE EVENT DATE: 20220912
